FAERS Safety Report 9410583 (Version 3)
Quarter: 2014Q2

REPORT INFORMATION
  Report Type: Report from Study
  Country: NL (occurrence: NL)
  Receive Date: 20130719
  Receipt Date: 20140417
  Transmission Date: 20141212
  Serious: Yes (Other)
  Sender: FDA-Public Use
  Company Number: NL-BAYER-2013-084719

PATIENT
  Age: 32 Year
  Sex: Female

DRUGS (1)
  1. BETAFERON [Suspect]
     Indication: MULTIPLE SCLEROSIS
     Dosage: 250 MG, QOD
     Route: 058
     Dates: start: 20130313

REACTIONS (6)
  - Multiple sclerosis [None]
  - Respiratory tract infection [None]
  - Influenza like illness [None]
  - Body temperature increased [None]
  - Pyrexia [Unknown]
  - Sleep disorder [Unknown]
